FAERS Safety Report 16796174 (Version 2)
Quarter: 2019Q4

REPORT INFORMATION
  Report Type: Spontaneous
  Country: JP (occurrence: JP)
  Receive Date: 20190911
  Receipt Date: 20191021
  Transmission Date: 20200122
  Serious: Yes (Other)
  Sender: FDA-Public Use
  Company Number: JP-ABBVIE-19P-087-2917168-00

PATIENT
  Age: 32 Year
  Sex: Male

DRUGS (4)
  1. TRETINOIN. [Suspect]
     Active Substance: TRETINOIN
     Indication: ACUTE PROMYELOCYTIC LEUKAEMIA
     Route: 065
  2. NORVIR [Suspect]
     Active Substance: RITONAVIR
     Indication: HIV-ASSOCIATED NEUROCOGNITIVE DISORDER
     Route: 048
  3. ABACAVIR W/LAMIVUDINE [Suspect]
     Active Substance: ABACAVIR\LAMIVUDINE
     Indication: HIV-ASSOCIATED NEUROCOGNITIVE DISORDER
     Route: 065
  4. DARUNAVIR ETHANOLATE. [Suspect]
     Active Substance: DARUNAVIR ETHANOLATE
     Indication: HIV-ASSOCIATED NEUROCOGNITIVE DISORDER
     Route: 065

REACTIONS (4)
  - Pneumonia bacterial [Recovering/Resolving]
  - Febrile neutropenia [Recovered/Resolved]
  - Acute promyelocytic leukaemia [Recovering/Resolving]
  - Differentiation syndrome [Unknown]
